FAERS Safety Report 6253447-5 (Version None)
Quarter: 2009Q3

REPORT INFORMATION
  Report Type: 
  Country: None (occurrence: None)
  Receive Date: 20090701
  Receipt Date: 20090621
  Transmission Date: 20100115
  Serious: Yes (Hospitalization)
  Sender: FDA-Public Use
  Company Number: TR-MYLANLABS-2009S1011237

PATIENT
  Age: 53 Year
  Sex: Male
  Weight: 85 kg

DRUGS (2)
  1. SOTALOL HYDROCHLORIDE [Suspect]
     Indication: ATRIAL FLUTTER
  2. DILTIAZEM [Suspect]
     Route: 048

REACTIONS (2)
  - CARDIOGENIC SHOCK [None]
  - DRUG INTERACTION [None]
